FAERS Safety Report 18851725 (Version 1)
Quarter: 2021Q1

REPORT INFORMATION
  Report Type: Spontaneous
  Country: US (occurrence: US)
  Receive Date: 20210205
  Receipt Date: 20210205
  Transmission Date: 20210420
  Serious: No
  Sender: FDA-Public Use
  Company Number: None

PATIENT
  Age: 79 Year
  Sex: Female
  Weight: 69 kg

DRUGS (14)
  1. VALSARTAN?HCTZ 80?12.5MG [Concomitant]
  2. GABAPENTIN 100MG [Concomitant]
     Active Substance: GABAPENTIN
  3. CYANOCOBALAMIN. [Concomitant]
     Active Substance: CYANOCOBALAMIN
  4. VITAMIN D3 2000U [Concomitant]
  5. AMLODIPINE [Concomitant]
     Active Substance: AMLODIPINE BESYLATE
  6. ASPIRIN 81MG [Concomitant]
     Active Substance: ASPIRIN
  7. KLOR?CON M20 20MEQ [Concomitant]
  8. CAPECITABINE. [Suspect]
     Active Substance: CAPECITABINE
     Indication: BREAST CANCER
     Dosage: ?          OTHER FREQUENCY:BID 7 ON, 7 OFF;?
     Route: 048
     Dates: start: 20200729, end: 20210205
  9. HYDROCHLOROTHIAZIDE 12.5MG [Concomitant]
     Active Substance: HYDROCHLOROTHIAZIDE
  10. VITAMIN B12 1000MCG [Concomitant]
  11. DEXAMETHASONE 0.5MG/5ML [Concomitant]
  12. ATORVASTATIN 80MG [Concomitant]
     Active Substance: ATORVASTATIN
  13. CALCIUM 1200MG [Concomitant]
  14. FEMARA [Concomitant]
     Active Substance: LETROZOLE

REACTIONS (1)
  - Disease progression [None]

NARRATIVE: CASE EVENT DATE: 20210205
